FAERS Safety Report 9757922 (Version 1)
Quarter: 2013Q4

REPORT INFORMATION
  Report Type: Spontaneous
  Country: BR (occurrence: BR)
  Receive Date: 20131216
  Receipt Date: 20131216
  Transmission Date: 20140711
  Serious: Yes (Other)
  Sender: FDA-Public Use
  Company Number: BR-ACCORD-020719

PATIENT
  Age: 66 Year
  Sex: Male
  Weight: 67.2 kg

DRUGS (7)
  1. GRANISETRON [Concomitant]
     Route: 042
     Dates: start: 20131011, end: 20131011
  2. CARBOPLATIN [Concomitant]
     Dates: start: 20131011
  3. PACLITAXEL [Suspect]
     Indication: OVARIAN CANCER
     Route: 042
     Dates: start: 20131011, end: 20131011
  4. DEXAMETHASONE [Concomitant]
     Route: 042
     Dates: start: 20131011, end: 20131011
  5. DIFENIDRIN [Concomitant]
     Route: 042
     Dates: start: 20131011, end: 20131011
  6. RIVOTRIL [Concomitant]
     Route: 048
  7. ALPRAZOLAM [Concomitant]
     Route: 048

REACTIONS (4)
  - Malaise [Recovered/Resolved]
  - Tachycardia [Recovered/Resolved]
  - Hypertension [Recovered/Resolved]
  - Hyperaemia [Recovered/Resolved]
